FAERS Safety Report 23756137 (Version 1)
Quarter: 2024Q2

REPORT INFORMATION
  Report Type: Spontaneous
  Country: US (occurrence: US)
  Receive Date: 20240418
  Receipt Date: 20240418
  Transmission Date: 20240716
  Serious: Yes (Hospitalization, Other)
  Sender: FDA-Public Use
  Company Number: US-BEH-2024170636

PATIENT
  Age: 59 Year
  Sex: Female

DRUGS (1)
  1. HIZENTRA [Suspect]
     Active Substance: HUMAN IMMUNOGLOBULIN G
     Indication: Immunodeficiency common variable
     Dosage: 8 G, QW
     Route: 058

REACTIONS (3)
  - Pneumonia [Not Recovered/Not Resolved]
  - Pneumonia fungal [Not Recovered/Not Resolved]
  - Sinusitis bacterial [Not Recovered/Not Resolved]

NARRATIVE: CASE EVENT DATE: 20240329
